FAERS Safety Report 6882291-0 (Version None)
Quarter: 2010Q3

REPORT INFORMATION
  Report Type: 
  Country: None (occurrence: None)
  Receive Date: 20100729
  Receipt Date: 20100721
  Transmission Date: 20110219
  Serious: Yes (Other)
  Sender: FDA-Public Use
  Company Number: TR-BRISTOL-MYERS SQUIBB COMPANY-15204902

PATIENT
  Age: 74 Year
  Sex: Male

DRUGS (1)
  1. WARFARIN SODIUM [Suspect]
     Indication: VENA CAVA INJURY
     Route: 048

REACTIONS (3)
  - HAEMATOMA [None]
  - MEDIAN NERVE INJURY [None]
  - ULNAR NERVE INJURY [None]
